FAERS Safety Report 7990711-3 (Version None)
Quarter: 2011Q4

REPORT INFORMATION
  Report Type: 
  Country: None (occurrence: None)
  Receive Date: 20111219
  Receipt Date: 20111212
  Transmission Date: 20120403
  Serious: Yes (Death, Other)
  Sender: FDA-Public Use
  Company Number: BR-SANOFI-AVENTIS-2011SA081614

PATIENT

DRUGS (3)
  1. DEXAMETHASONE [Concomitant]
     Dosage: THE DAY BEFORE, THE DAY OF AN DTHE DAY AFTER
  2. DOCETAXEL [Suspect]
     Indication: NON-SMALL CELL LUNG CANCER
     Dosage: ON DAY 1
     Route: 042
  3. CARBOPLATIN [Suspect]
     Indication: NON-SMALL CELL LUNG CANCER
     Dosage: AREA UNDER THE CURVE = 5 MG/ML X MIN; OVER APPROXIMATELY 10 MIN
     Route: 065

REACTIONS (14)
  - VOMITING [None]
  - LEUKOPENIA [None]
  - FEBRILE NEUTROPENIA [None]
  - NEUTROPENIA [None]
  - ANAEMIA [None]
  - ANAPHYLACTIC SHOCK [None]
  - ACUTE RESPIRATORY FAILURE [None]
  - PNEUMONIA [None]
  - THROMBOCYTOPENIA [None]
  - DIARRHOEA [None]
  - NAUSEA [None]
  - CARDIAC ARREST [None]
  - PERIPHERAL SENSORY NEUROPATHY [None]
  - NEUROTOXICITY [None]
